FAERS Safety Report 10247266 (Version 1)
Quarter: 2014Q2

REPORT INFORMATION
  Report Type: Spontaneous
  Country: GB (occurrence: GB)
  Receive Date: 20140619
  Receipt Date: 20140619
  Transmission Date: 20141212
  Serious: Yes (Life-Threatening, Hospitalization, Disabling)
  Sender: FDA-Public Use
  Company Number: GB-GLAXOSMITHKLINE-B0978312A

PATIENT
  Age: 28 Year
  Sex: Female
  Weight: 85.27 kg

DRUGS (7)
  1. BETNOVATE [Suspect]
     Indication: ECZEMA
     Route: 061
  2. BECONASE [Suspect]
     Indication: NASAL CONGESTION
     Route: 045
  3. BECLOMETHASONE [Suspect]
     Indication: ASTHMA
     Route: 055
  4. CETIRIZINE [Concomitant]
  5. CICLOSPORIN [Concomitant]
  6. HYDROXYZINE [Concomitant]
  7. INHALER [Concomitant]

REACTIONS (9)
  - Drug dependence [Recovering/Resolving]
  - Eczema herpeticum [Recovering/Resolving]
  - Drug prescribing error [Unknown]
  - Erythema [Recovering/Resolving]
  - Swelling [Recovering/Resolving]
  - Inflammation [Recovering/Resolving]
  - Asthma [Recovering/Resolving]
  - Nasal congestion [Recovering/Resolving]
  - Condition aggravated [Recovering/Resolving]
